FAERS Safety Report 4765653-7 (Version None)
Quarter: 2005Q3

REPORT INFORMATION
  Report Type: 
  Country: None (occurrence: None)
  Receive Date: 20050912
  Receipt Date: 20050902
  Transmission Date: 20060218
  Serious: Yes (Death, Other)
  Sender: FDA-Public Use
  Company Number: 200511997DE

PATIENT
  Age: 61 Year
  Sex: Male

DRUGS (3)
  1. TAXOTERE [Suspect]
     Indication: SALIVARY GLAND NEOPLASM
     Dates: end: 20050131
  2. CORTISONE ACETATE TAB [Concomitant]
     Indication: HYPERSENSITIVITY
     Dates: start: 20040101
  3. ANTIBIOTICS [Concomitant]

REACTIONS (8)
  - COMA [None]
  - DYSGEUSIA [None]
  - DYSPNOEA [None]
  - GENERAL PHYSICAL HEALTH DETERIORATION [None]
  - HYPERHIDROSIS [None]
  - HYPERSENSITIVITY [None]
  - INTERSTITIAL LUNG DISEASE [None]
  - RENAL FAILURE [None]
